FAERS Safety Report 20847465 (Version 1)
Quarter: 2022Q2

REPORT INFORMATION
  Report Type: Spontaneous
  Country: DE (occurrence: DE)
  Receive Date: 20220519
  Receipt Date: 20220519
  Transmission Date: 20220720
  Serious: Yes (Other)
  Sender: FDA-Public Use
  Company Number: DE-PEI-202200103125

PATIENT
  Age: 1 Day
  Sex: Female

DRUGS (8)
  1. TYSABRI [Suspect]
     Active Substance: NATALIZUMAB
     Indication: Product used for unknown indication
     Route: 064
     Dates: start: 20201130, end: 20210609
  2. LEVOTHYROXINE SODIUM [Concomitant]
     Active Substance: LEVOTHYROXINE SODIUM
     Indication: Autoimmune thyroiditis
     Dosage: 150 [MICROGRAM/D]/ VARYING DOSAGE BETWEEN 100 AND 150MICROGRAM DAILY
     Route: 064
     Dates: start: 20201130, end: 20210816
  3. POLLIVAL [Concomitant]
     Indication: Autoimmune thyroiditis
     Dosage: IF REQUIRED
     Route: 064
     Dates: start: 20210612, end: 20210702
  4. celestan (betamethasone) [Concomitant]
     Indication: Maternal therapy to enhance foetal lung maturity
     Route: 064
     Dates: start: 20210710, end: 20210711
  5. COVAXIS [Concomitant]
     Indication: Immunisation
     Route: 064
     Dates: start: 20210701, end: 20210701
  6. DEQUALINIUM CHLORIDE [Concomitant]
     Active Substance: DEQUALINIUM CHLORIDE
     Indication: Bacterial vaginosis
     Route: 064
     Dates: start: 20210623, end: 20210628
  7. HUMALOG [Concomitant]
     Active Substance: INSULIN LISPRO
     Indication: Monogenic diabetes
     Dosage: ON DEMAND
     Route: 064
     Dates: start: 20201130, end: 20210816
  8. LEVEMIR [Concomitant]
     Active Substance: INSULIN DETEMIR
     Indication: Monogenic diabetes
     Dosage: TWICE DAILY, IF REQUIRED
     Route: 064
     Dates: start: 20201130, end: 20210816

REACTIONS (3)
  - Atrial septal defect [Recovered/Resolved]
  - Foetal anaemia [Recovered/Resolved]
  - Foetal exposure during pregnancy [Unknown]

NARRATIVE: CASE EVENT DATE: 20210801
